FAERS Safety Report 4909365-5 (Version None)
Quarter: 2006Q1

REPORT INFORMATION
  Report Type: 
  Country: None (occurrence: None)
  Receive Date: 20060213
  Receipt Date: 20060127
  Transmission Date: 20060701
  Serious: Yes (Other)
  Sender: FDA-Public Use
  Company Number: FR-GLAXOSMITHKLINE-B0410287A

PATIENT
  Age: 53 Year
  Sex: Male

DRUGS (8)
  1. ROPINIROLE [Suspect]
     Indication: RESTLESS LEGS SYNDROME
     Route: 048
     Dates: start: 20060113
  2. INSULINE [Concomitant]
     Route: 065
  3. ZOCOR [Concomitant]
     Route: 065
  4. CLONAZEPAM [Concomitant]
     Indication: NEUROPATHY PERIPHERAL
     Route: 065
  5. HEXAQUINE [Concomitant]
     Route: 065
  6. DOLKO [Concomitant]
     Route: 065
  7. KARDEGIC [Concomitant]
     Route: 065
  8. ERYTHROCINE [Concomitant]
     Route: 065

REACTIONS (1)
  - HYPOGLYCAEMIA [None]
